FAERS Safety Report 17003586 (Version 3)
Quarter: 2021Q3

REPORT INFORMATION
  Report Type: Report from Study
  Country: JP (occurrence: JP)
  Receive Date: 20191107
  Receipt Date: 20210930
  Transmission Date: 20211014
  Serious: Yes (Other)
  Sender: FDA-Public Use
  Company Number: JP-VIIV HEALTHCARE LIMITED-JP2018JPN170314

PATIENT
  Age: 40 Year
  Sex: Male

DRUGS (6)
  1. DESCOVY [Suspect]
     Active Substance: EMTRICITABINE\TENOFOVIR ALAFENAMIDE FUMARATE
     Indication: HIV INFECTION
     Dosage: 1 DF, 1D
     Route: 048
     Dates: start: 20170804, end: 20191208
  2. FLORID ORAL GEL [Concomitant]
     Active Substance: MICONAZOLE
     Dosage: UNK
     Dates: start: 20170804, end: 20170811
  3. BICTEGRAVIR [Concomitant]
     Active Substance: BICTEGRAVIR
     Indication: HIV INFECTION
     Dosage: 1 DF, 1D
     Dates: start: 20191209
  4. KENALOG [Concomitant]
     Active Substance: TRIAMCINOLONE ACETONIDE
     Dosage: UNK
     Dates: start: 20170811, end: 20180205
  5. CHAMPIX [Concomitant]
     Active Substance: VARENICLINE TARTRATE
     Indication: SMOKING CESSATION THERAPY
     Dosage: UNK
     Dates: start: 20180831, end: 201812
  6. DOLUTEGRAVIR [Suspect]
     Active Substance: DOLUTEGRAVIR
     Indication: HIV INFECTION
     Dosage: 1 DF, 1D
     Route: 048
     Dates: start: 20170804, end: 20191208

REACTIONS (9)
  - Seborrhoeic dermatitis [Recovering/Resolving]
  - Hypertension [Not Recovered/Not Resolved]
  - Tension headache [Recovering/Resolving]
  - Nausea [Recovering/Resolving]
  - Migraine [Recovering/Resolving]
  - Erectile dysfunction [Not Recovered/Not Resolved]
  - Oral herpes [Recovering/Resolving]
  - Headache [Recovered/Resolved]
  - Therapeutic product effect incomplete [Recovered/Resolved]

NARRATIVE: CASE EVENT DATE: 201708
